FAERS Safety Report 6104352-6 (Version None)
Quarter: 2009Q1

REPORT INFORMATION
  Report Type: 
  Country: None (occurrence: None)
  Receive Date: 20090302
  Receipt Date: 20090107
  Transmission Date: 20090719
  Serious: Yes (Other)
  Sender: FDA-Public Use
  Company Number: 2008EU000867

PATIENT
  Age: 9 Year
  Sex: Female

DRUGS (2)
  1. PROTOPIC [Suspect]
     Indication: DERMATITIS ATOPIC
     Dosage: 0.03 %, TOPICAL; 0.1 %, TOPICAL
     Route: 061
     Dates: start: 20030521, end: 20030629
  2. PREDNICARBATE [Suspect]
     Indication: DERMATITIS ATOPIC
     Dosage: TOPICAL
     Route: 061
     Dates: start: 20020412, end: 20020517

REACTIONS (1)
  - MYCOSIS FUNGOIDES STAGE I [None]
